FAERS Safety Report 12173407 (Version 1)
Quarter: 2016Q1

REPORT INFORMATION
  Report Type: Report from Study
  Country: US (occurrence: US)
  Receive Date: 20160311
  Receipt Date: 20160311
  Transmission Date: 20160526
  Serious: Yes (Hospitalization)
  Sender: FDA-Public Use
  Company Number: US-ASTRAZENECA-2016SE21289

PATIENT
  Age: 28794 Day
  Sex: Female
  Weight: 45.4 kg

DRUGS (1)
  1. DALIRESP [Suspect]
     Active Substance: ROFLUMILAST
     Indication: CHRONIC OBSTRUCTIVE PULMONARY DISEASE
     Route: 048

REACTIONS (5)
  - Pneumonia [Not Recovered/Not Resolved]
  - Blood pressure abnormal [Unknown]
  - Drug intolerance [Unknown]
  - Dyspnoea [Unknown]
  - Atrial fibrillation [Unknown]

NARRATIVE: CASE EVENT DATE: 20151222
